FAERS Safety Report 4345292-2 (Version None)
Quarter: 2004Q2

REPORT INFORMATION
  Report Type: 
  Country: None (occurrence: None)
  Receive Date: 20040420
  Receipt Date: 20040406
  Transmission Date: 20050107
  Serious: Yes (Hospitalization)
  Sender: FDA-Public Use
  Company Number: A03200401061

PATIENT
  Age: 20 Year
  Sex: Male

DRUGS (2)
  1. ARIXTRA [Suspect]
     Indication: HEPARIN-INDUCED THROMBOCYTOPENIA
     Dosage: 7.5 MG QD, SUBCUTANEOUS
     Route: 058
     Dates: start: 20040320
  2. ARIXTRA [Suspect]
     Indication: THROMBOSIS
     Dosage: 7.5 MG QD, SUBCUTANEOUS
     Route: 058
     Dates: start: 20040320

REACTIONS (4)
  - GINGIVITIS [None]
  - NEUTROPHIL COUNT DECREASED [None]
  - ORAL PAIN [None]
  - STOMATITIS [None]
